APPROVED DRUG PRODUCT: AMOXICILLIN AND CLAVULANATE POTASSIUM
Active Ingredient: AMOXICILLIN; CLAVULANATE POTASSIUM
Strength: 250MG;EQ 125MG BASE
Dosage Form/Route: TABLET;ORAL
Application: A065333 | Product #001
Applicant: APOTEX INC
Approved: Feb 24, 2009 | RLD: No | RS: No | Type: DISCN